FAERS Safety Report 5644220-7 (Version None)
Quarter: 2008Q1

REPORT INFORMATION
  Report Type: 
  Country: None (occurrence: None)
  Receive Date: 20080227
  Receipt Date: 20080227
  Transmission Date: 20080703
  Serious: Yes (Other)
  Sender: FDA-Public Use
  Company Number: None

PATIENT
  Age: 72 Year
  Sex: Male
  Weight: 81.6475 kg

DRUGS (1)
  1. TORSEMIDE [Suspect]
     Indication: CARDIAC FAILURE CONGESTIVE
     Dosage: ONE DAY
     Dates: start: 20080201

REACTIONS (3)
  - DRUG INEFFECTIVE [None]
  - FLUID RETENTION [None]
  - PHARMACEUTICAL PRODUCT COMPLAINT [None]
